FAERS Safety Report 17513837 (Version 5)
Quarter: 2020Q3

REPORT INFORMATION
  Report Type: Report from Study
  Country: US (occurrence: US)
  Receive Date: 20200306
  Receipt Date: 20200724
  Transmission Date: 20201102
  Serious: Yes (Other)
  Sender: FDA-Public Use
  Company Number: NVSC2020US064784

PATIENT
  Age: 81 Year
  Sex: Male

DRUGS (1)
  1. COSENTYX [Suspect]
     Active Substance: SECUKINUMAB
     Indication: PSORIATIC ARTHROPATHY
     Dosage: 300 MG/KG, QMO
     Route: 058
     Dates: start: 20191101, end: 20200702

REACTIONS (5)
  - Cellulitis [Recovered/Resolved]
  - Product dose omission issue [Unknown]
  - Swelling [Recovered/Resolved]
  - Joint swelling [Unknown]
  - Device issue [Unknown]

NARRATIVE: CASE EVENT DATE: 20191206
